FAERS Safety Report 17430629 (Version 1)
Quarter: 2020Q1

REPORT INFORMATION
  Report Type: Spontaneous
  Country: US (occurrence: US)
  Receive Date: 20200216
  Receipt Date: 20200216
  Transmission Date: 20200409
  Serious: Yes (Disabling, Other)
  Sender: FDA-Public Use
  Company Number: None

PATIENT
  Age: 43 Year
  Sex: Male
  Weight: 123.75 kg

DRUGS (13)
  1. INSULIN [Concomitant]
     Active Substance: INSULIN NOS
  2. BUPRENORPHINE AND NALOXONE SUBLINGUAL FILM 8 MG/2 MG [Suspect]
     Active Substance: BUPRENORPHINE\NALOXONE
     Indication: DRUG WITHDRAWAL SYNDROME
     Dosage: ?          QUANTITY:2.5 2.5 FILMS;?
     Route: 060
     Dates: start: 20200210, end: 20200216
  3. LITHIUMSUBOXIN [Concomitant]
  4. HYDROXAZINE [Concomitant]
  5. FOLI ACID [Concomitant]
  6. OMEPRAZOLE. [Concomitant]
     Active Substance: OMEPRAZOLE
  7. GABBAPENTIN [Concomitant]
     Active Substance: GABAPENTIN
  8. SERAQUILL [Concomitant]
  9. METFORMIN [Concomitant]
     Active Substance: METFORMIN HYDROCHLORIDE
  10. LISINOPRIL. [Concomitant]
     Active Substance: LISINOPRIL
  11. MULTI VITAMIN [Concomitant]
     Active Substance: VITAMINS
  12. VITAMIN [Concomitant]
     Active Substance: VITAMINS
  13. DAILY [Concomitant]
     Active Substance: ETHINYL ESTRADIOL\LEVONORGESTREL

REACTIONS (4)
  - Drug withdrawal syndrome [None]
  - Therapy non-responder [None]
  - Product substitution issue [None]
  - Malaise [None]

NARRATIVE: CASE EVENT DATE: 20200210
